FAERS Safety Report 24215103 (Version 1)
Quarter: 2024Q3

REPORT INFORMATION
  Report Type: Spontaneous
  Country: US (occurrence: US)
  Receive Date: 20240816
  Receipt Date: 20240816
  Transmission Date: 20241017
  Serious: Yes (Other)
  Sender: EMCURE
  Company Number: US-AVET LIFESCIENCES LTD-2024-AVET-000286

PATIENT
  Age: 72 Year
  Sex: Male

DRUGS (5)
  1. TACROLIMUS [Suspect]
     Active Substance: TACROLIMUS
     Indication: Graft versus host disease
     Dosage: UNK
     Route: 065
  2. CYCLOPHOSPHAMIDE [Suspect]
     Active Substance: CYCLOPHOSPHAMIDE
     Indication: Graft versus host disease
     Dosage: DAYS 3 AND 4 AFTER TRANSPLANT
     Route: 065
  3. MYCOPHENOLATE MOFETIL [Suspect]
     Active Substance: MYCOPHENOLATE MOFETIL
     Indication: Graft versus host disease
     Dosage: HOSPITAL DAY 5
     Route: 065
  4. PREDNISONE [Suspect]
     Active Substance: PREDNISONE
     Indication: Graft versus host disease
     Dosage: 50-60MG PER DAY FOR OVER THREE MONTHS PRIOR TO TRANSPLANT
     Route: 065
  5. PREDNISONE [Suspect]
     Active Substance: PREDNISONE
     Dosage: 0.5 MG/KG, 40MG ORAL DAILY
     Route: 048

REACTIONS (1)
  - Bacteraemia [Recovered/Resolved]
